FAERS Safety Report 7207712-5 (Version None)
Quarter: 2011Q1

REPORT INFORMATION
  Report Type: 
  Country: None (occurrence: None)
  Receive Date: 20110103
  Receipt Date: 20101229
  Transmission Date: 20110831
  Serious: Yes (Life-Threatening)
  Sender: FDA-Public Use
  Company Number: DE-JNJFOC-20110100128

PATIENT
  Age: 52 Year
  Sex: Male

DRUGS (4)
  1. REOPRO [Suspect]
     Route: 042
  2. ASPIRIN [Concomitant]
     Indication: MYOCARDIAL INFARCTION
  3. CLOPIDOGREL [Concomitant]
     Indication: MYOCARDIAL INFARCTION
  4. REOPRO [Suspect]
     Indication: MYOCARDIAL INFARCTION
     Route: 042

REACTIONS (1)
  - ISCHAEMIC STROKE [None]
